FAERS Safety Report 10501532 (Version 1)
Quarter: 2014Q4

REPORT INFORMATION
  Report Type: Spontaneous
  Country: US (occurrence: None)
  Receive Date: 20141006
  Receipt Date: 20141006
  Transmission Date: 20150528
  Serious: Yes (Hospitalization, Disabling, Congenital Anomaly)
  Sender: FDA-Public Use
  Company Number: None

PATIENT
  Age: 21 Year
  Sex: Female

DRUGS (1)
  1. PARAGARD T380A [Suspect]
     Active Substance: COPPER

REACTIONS (8)
  - Maternal drugs affecting foetus [None]
  - Feeding disorder [None]
  - Pregnancy with contraceptive device [None]
  - Scoliosis [None]
  - Maternal exposure during pregnancy [None]
  - Respiratory disorder [None]
  - Congenital central nervous system anomaly [None]
  - Cardiac disorder [None]

NARRATIVE: CASE EVENT DATE: 20110715
